FAERS Safety Report 21990795 (Version 1)
Quarter: 2023Q1

REPORT INFORMATION
  Report Type: Spontaneous
  Country: US (occurrence: US)
  Receive Date: 20230214
  Receipt Date: 20230214
  Transmission Date: 20230418
  Serious: Yes (Hospitalization)
  Sender: FDA-Public Use
  Company Number: US-BIOMARINAP-US-2023-148551

PATIENT

DRUGS (1)
  1. KUVAN [Suspect]
     Active Substance: SAPROPTERIN DIHYDROCHLORIDE
     Indication: Product used for unknown indication
     Route: 065

REACTIONS (5)
  - Cystic fibrosis [Unknown]
  - Respiratory syncytial virus infection [Unknown]
  - Infection [Unknown]
  - Respiratory symptom [Unknown]
  - Off label use [Unknown]

NARRATIVE: CASE EVENT DATE: 20190627
